FAERS Safety Report 7775079-X (Version None)
Quarter: 2011Q3

REPORT INFORMATION
  Report Type: 
  Country: None (occurrence: None)
  Receive Date: 20110923
  Receipt Date: 20110914
  Transmission Date: 20111222
  Serious: Yes (Hospitalization, Other)
  Sender: FDA-Public Use
  Company Number: US-BAXTER-2011BH029314

PATIENT
  Sex: Male

DRUGS (1)
  1. DIANEAL [Suspect]
     Indication: PERITONEAL DIALYSIS
     Route: 033
     Dates: end: 20110101

REACTIONS (4)
  - CARDIAC FAILURE CONGESTIVE [None]
  - TREATMENT NONCOMPLIANCE [None]
  - FLUID OVERLOAD [None]
  - BLOOD ALBUMIN DECREASED [None]
